FAERS Safety Report 17009537 (Version 1)
Quarter: 2019Q4

REPORT INFORMATION
  Report Type: Spontaneous
  Country: US (occurrence: US)
  Receive Date: 20191108
  Receipt Date: 20191108
  Transmission Date: 20200122
  Serious: No
  Sender: FDA-Public Use
  Company Number: US-PFIZER INC-2016480562

PATIENT
  Age: 59 Year
  Sex: Female
  Weight: 44 kg

DRUGS (28)
  1. ALBUTEROL SULFATE. [Concomitant]
     Active Substance: ALBUTEROL SULFATE
     Dosage: 0.083 %, AS NEEDED; (2.5 MG/3ML; INHALATION QID PRN)
  2. SEROQUEL [Concomitant]
     Active Substance: QUETIAPINE FUMARATE
     Dosage: 300 MG, 1X/DAY; (IN THE EVENING )
     Route: 048
  3. ASPIRIN. [Concomitant]
     Active Substance: ASPIRIN
     Dosage: 81 MG, 1X/DAY (30 DAYS)
     Route: 048
  4. DIPHENHYDRAMINE HCL [Concomitant]
     Active Substance: DIPHENHYDRAMINE HYDROCHLORIDE
     Dosage: 25 MG, AS NEEDED; (EVERY 6 HRS PRN)
     Route: 048
  5. GINSENG [Concomitant]
     Active Substance: ASIAN GINSENG
     Dosage: 500 MG, 1X/DAY
     Route: 048
  6. RASPBERRY CONCENTRATE [Concomitant]
     Dosage: UNK
  7. BENZOYL PEROXIDE W/ERYTHROMYCIN [Concomitant]
     Dosage: UNK UNK, 2X/DAY; (5-3 % 1 APPLICATION TO AFFECTED AREA EXTERNALLY)
     Route: 061
     Dates: end: 20170612
  8. SUDAFED [Concomitant]
     Active Substance: PSEUDOEPHEDRINE HYDROCHLORIDE
     Dosage: 30 MG, AS NEEDED; (EVERY 6 HRS)
     Route: 048
  9. METOPROLOL TARTRATE. [Concomitant]
     Active Substance: METOPROLOL TARTRATE
     Dosage: 50 MG, 2X/DAY
     Route: 048
  10. NORCO [Concomitant]
     Active Substance: ACETAMINOPHEN\HYDROCODONE BITARTRATE
     Indication: PAIN
     Dosage: 1 DF, AS NEEDED; (ACETAMINOPHEN 325 MG /HYDROCODONE 10 MG; EVERY 4-6 HRS PRN)
     Route: 048
     Dates: end: 20160326
  11. PULMICORT TURBUHALER [Concomitant]
     Active Substance: BUDESONIDE
     Dosage: 2 ML, 2X/DAY; (0.25 MG/2 ML; INHALATION
     Route: 045
  12. LYRICA [Suspect]
     Active Substance: PREGABALIN
     Indication: INTERVERTEBRAL DISC DEGENERATION
     Dosage: 100 MG, 2X/DAY
     Route: 048
  13. VITAMIN D3 [Concomitant]
     Active Substance: CHOLECALCIFEROL
     Dosage: 5000 IU, UNK; (AS DIRECTED )
     Route: 048
  14. VITAMIIN A [Concomitant]
     Dosage: 8000 IU, UNK
     Route: 048
  15. OMEPRAZOLE. [Concomitant]
     Active Substance: OMEPRAZOLE
     Dosage: 40 MG, DAILY
     Route: 048
  16. VITAMIN E [Concomitant]
     Active Substance: .ALPHA.-TOCOPHEROL
     Dosage: 200 IU, 1X/DAY
     Route: 048
  17. TRIAMCINOLONE ACETONIDE. [Concomitant]
     Active Substance: TRIAMCINOLONE ACETONIDE
     Dosage: 0.1 %, 2X/DAY; (1 APPLICATION TO AFFECTED AREA EXTERNALLY)
     Route: 061
  18. BACLOFEN. [Concomitant]
     Active Substance: BACLOFEN
     Dosage: 20 MG, 4X/DAY; (WITH FOOD OR MILK )
     Route: 048
     Dates: end: 20170314
  19. TRIPLE OMEGA COMPLEX [Concomitant]
     Dosage: UNK; (AS DIRECTED )
     Route: 048
  20. GLUCOSAMINE CHONDROTIN COMPLEX [Concomitant]
     Dosage: 1 DF, 1X/DAY; (500-400 MG)
     Route: 048
  21. FLUTICASONE PROPIONATE. [Concomitant]
     Active Substance: FLUTICASONE PROPIONATE
     Dosage: UNK, 1X/DAY (50 MCG/ACT; 1 TO 2 SPRAYS IN EACH NOSTRIL )
     Route: 045
  22. FLUOXETINE HCL [Concomitant]
     Active Substance: FLUOXETINE HYDROCHLORIDE
     Dosage: 60 MG, 1X/DAY; (20 MG TAKE 3 CAPSULES IN THE MORNING)
  23. BROVANA [Concomitant]
     Active Substance: ARFORMOTEROL TARTRATE
     Dosage: 2 ML, 2X/DAY; (15 MCG/2ML )
     Route: 045
  24. VITAMIN C [Concomitant]
     Active Substance: ASCORBIC ACID
     Dosage: 500 MG, 1X/DAY
     Route: 048
  25. VITAMIN B12 [Concomitant]
     Active Substance: CYANOCOBALAMIN
     Dosage: 1000 UG, 1X/DAY
     Route: 048
  26. PROAIR HFA [Concomitant]
     Active Substance: ALBUTEROL SULFATE
     Indication: DYSPNOEA
     Dosage: UNK UNK, AS NEEDED; MCG/ACT TAKE 1 PUFFS EVERY 4 HOURS
  27. LYRICA [Suspect]
     Active Substance: PREGABALIN
     Indication: PAIN
     Dosage: 100 MG, UNK; (1 CAPSULE TWO TO THREE TIMES A DAY )
     Route: 048
  28. LYRICA [Suspect]
     Active Substance: PREGABALIN
     Indication: ANXIETY DISORDER
     Dosage: 100 MG, 3X/DAY
     Route: 048

REACTIONS (1)
  - Feeling abnormal [Unknown]
